FAERS Safety Report 18072845 (Version 1)
Quarter: 2020Q3

REPORT INFORMATION
  Report Type: Spontaneous
  Country: DE (occurrence: DE)
  Receive Date: 20200727
  Receipt Date: 20200727
  Transmission Date: 20201103
  Serious: Yes (Hospitalization)
  Sender: FDA-Public Use
  Company Number: NVSC2020DE203824

PATIENT
  Sex: Male

DRUGS (1)
  1. CEFPODOXIM ? 1 A PHARMA 200 MG FILMTABLETTEN [Suspect]
     Active Substance: CEFPODOXIME PROXETIL
     Indication: PRODUCT USED FOR UNKNOWN INDICATION
     Dosage: 2 DF
     Route: 048

REACTIONS (2)
  - Adverse reaction [Recovering/Resolving]
  - Abdominal pain upper [Recovering/Resolving]
